FAERS Safety Report 10143708 (Version 2)
Quarter: 2014Q2

REPORT INFORMATION
  Report Type: Spontaneous
  Country: US (occurrence: US)
  Receive Date: 20140430
  Receipt Date: 20140618
  Transmission Date: 20141212
  Serious: No
  Sender: FDA-Public Use
  Company Number: US-PFIZER INC-2014117642

PATIENT
  Age: 17 Year
  Sex: Female
  Weight: 58.05 kg

DRUGS (8)
  1. GENOTROPIN [Suspect]
     Indication: DWARFISM
     Dosage: 1.2 MG, DAILY
     Route: 058
     Dates: start: 201403
  2. GENOTROPIN [Suspect]
     Indication: GROWTH HORMONE DEFICIENCY
  3. FOCALIN XR [Concomitant]
     Dosage: 20 MG, UNK
  4. LEXAPRO [Concomitant]
     Dosage: 20 MG, UNK
  5. LO LOESTRIN FE [Concomitant]
     Dosage: UNK (1MG-10)
  6. LORATADINE [Concomitant]
     Dosage: 10 MG, UNK
  7. LORAZEPAM [Concomitant]
     Dosage: 0.5 MG, UNK
  8. QVAR [Concomitant]
     Dosage: 80 UG, UNK

REACTIONS (2)
  - Injection site haemorrhage [Unknown]
  - Liquid product physical issue [Recovered/Resolved]
